FAERS Safety Report 7679399-9 (Version None)
Quarter: 2011Q3

REPORT INFORMATION
  Report Type: 
  Country: None (occurrence: None)
  Receive Date: 20110812
  Receipt Date: 20110801
  Transmission Date: 20111222
  Serious: Yes (Other)
  Sender: FDA-Public Use
  Company Number: US-UCBSA-8036802

PATIENT
  Age: 36 Year
  Sex: Female

DRUGS (8)
  1. LEXAPRO [Concomitant]
     Indication: DEPRESSION
     Route: 048
  2. PHENERGAN HCL [Concomitant]
     Indication: NAUSEA
     Dates: start: 20071112
  3. KEPPRA [Suspect]
     Indication: EPILEPSY
     Dates: start: 20040924
  4. FOLIC ACID [Concomitant]
     Indication: PREGNANCY
     Dates: start: 20071112, end: 20080607
  5. PRENATAL VITAMINS [Concomitant]
     Indication: PREGNANCY
  6. CLARITIN-D 24 HOUR [Concomitant]
     Indication: HYPERSENSITIVITY
     Dates: start: 20071210
  7. PHENERGAN HCL [Concomitant]
     Indication: VOMITING
     Dates: start: 20071112
  8. VITAMIN B COMPLEX CAP [Concomitant]
     Indication: PREGNANCY

REACTIONS (5)
  - OLIGOHYDRAMNIOS [None]
  - PREGNANCY [None]
  - NAUSEA [None]
  - VOMITING [None]
  - HYPERSENSITIVITY [None]
